FAERS Safety Report 8846281 (Version 2)
Quarter: 2012Q4

REPORT INFORMATION
  Report Type: 
  Country: BR (occurrence: BR)
  Receive Date: 20121018
  Receipt Date: 20121105
  Transmission Date: 20130627
  Serious: Yes (Hospitalization, Other)
  Sender: FDA-Public Use
  Company Number: BR-AMGEN-BRASP2012065999

PATIENT
  Age: 43 Year
  Sex: Female
  Weight: 89 kg

DRUGS (7)
  1. ENBREL [Suspect]
     Indication: RHEUMATOID ARTHRITIS
     Dosage: UNK
     Dates: start: 201109, end: 20111215
  2. ISONIAZIDE [Concomitant]
     Indication: BONE PAIN
     Dosage: UNK
  3. ISONIAZIDE [Concomitant]
     Indication: TUBERCULOSIS
     Dosage: UNK
  4. ARAVA [Concomitant]
     Indication: BONE PAIN
     Dosage: UNK
  5. PREDNISONE [Concomitant]
     Indication: BONE PAIN
     Dosage: UNK
  6. PREDNISONE [Concomitant]
     Indication: TUBERCULOSIS
     Dosage: UNK
  7. FOLIC ACID [Concomitant]
     Indication: BONE PAIN
     Dosage: UNK

REACTIONS (6)
  - Gallbladder disorder [Unknown]
  - Drug-induced liver injury [Unknown]
  - Jaundice [Unknown]
  - Pain [Unknown]
  - Blood pressure increased [Unknown]
  - Tuberculosis [Unknown]
